FAERS Safety Report 10068384 (Version 1)
Quarter: 2014Q2

REPORT INFORMATION
  Report Type: Spontaneous
  Country: US (occurrence: US)
  Receive Date: 20140409
  Receipt Date: 20140409
  Transmission Date: 20141212
  Serious: No
  Sender: FDA-Public Use
  Company Number: US-009507513-1404USA003475

PATIENT
  Sex: Male

DRUGS (4)
  1. ISENTRESS [Suspect]
     Indication: HIV INFECTION
     Dosage: UNK, BID
     Route: 048
  2. NORVIR [Concomitant]
  3. PREZISTA [Concomitant]
  4. TRUVADA [Concomitant]

REACTIONS (2)
  - Drug resistance [Unknown]
  - Drug dose omission [Unknown]
